FAERS Safety Report 24317647 (Version 1)
Quarter: 2024Q3

REPORT INFORMATION
  Report Type: Spontaneous
  Country: US (occurrence: US)
  Receive Date: 20240913
  Receipt Date: 20240913
  Transmission Date: 20241017
  Serious: No
  Sender: PFIZER
  Company Number: US-PFIZER INC-202400253341

PATIENT
  Age: 64 Year
  Sex: Female
  Weight: 81.6 kg

DRUGS (7)
  1. CARBOPLATIN [Suspect]
     Active Substance: CARBOPLATIN
     Dosage: 2 CYCLES
  2. CARBOPLATIN [Suspect]
     Active Substance: CARBOPLATIN
     Dosage: 7 CYCLES
     Dates: end: 202101
  3. TRASTUZUMAB [Suspect]
     Active Substance: TRASTUZUMAB
     Dosage: UNK
  4. TAXOL [Suspect]
     Active Substance: PACLITAXEL
     Dosage: 7 CYCLES
     Dates: end: 202101
  5. PEMETREXED [Concomitant]
     Active Substance: PEMETREXED
     Dosage: 2 CYCLES
  6. PEMBROLIZUMAB [Concomitant]
     Active Substance: PEMBROLIZUMAB
     Dosage: 2 CYCLES
  7. HERCEPTIN [Concomitant]
     Active Substance: TRASTUZUMAB
     Dosage: 7 CYCLES

REACTIONS (1)
  - Neoplasm progression [Unknown]

NARRATIVE: CASE EVENT DATE: 20220919
